FAERS Safety Report 11416116 (Version 1)
Quarter: 2015Q3

REPORT INFORMATION
  Report Type: Spontaneous
  Country: US (occurrence: None)
  Receive Date: 20150824
  Receipt Date: 20150824
  Transmission Date: 20151125
  Serious: Yes (Disabling)
  Sender: FDA-Public Use
  Company Number: None

PATIENT
  Age: 41 Year
  Sex: Female
  Weight: 68.04 kg

DRUGS (7)
  1. MAGNESIUM [Concomitant]
     Active Substance: MAGNESIUM
  2. D3 [Concomitant]
     Active Substance: 25-HYDROXYCHOLECALCIFEROL, 5-TRANS-
  3. TURMERIC [Concomitant]
     Active Substance: TURMERIC
  4. LEVOFLOXACIN 500 MG ZYDUS [Suspect]
     Active Substance: LEVOFLOXACIN
     Indication: APPENDICITIS
     Route: 048
     Dates: start: 20150701, end: 20150703
  5. RAW PROBIOTICS BRAND KRILL OIL [Concomitant]
  6. K2 [Concomitant]
     Active Substance: JWH-018
  7. MULTI-VITAMIN (ULTRA PREVENTATIVE III CAPSULES BY DOUGLAS LABS) [Concomitant]

REACTIONS (17)
  - Chest pain [None]
  - Arthralgia [None]
  - Hypoaesthesia [None]
  - Insomnia [None]
  - Palpitations [None]
  - Chest discomfort [None]
  - Anxiety [None]
  - Myalgia [None]
  - Headache [None]
  - Musculoskeletal pain [None]
  - Fatigue [None]
  - Gastrointestinal disorder [None]
  - Paraesthesia [None]
  - Restlessness [None]
  - Tendon pain [None]
  - Neurological symptom [None]
  - Mitochondrial toxicity [None]

NARRATIVE: CASE EVENT DATE: 20150704
